FAERS Safety Report 15746560 (Version 3)
Quarter: 2022Q2

REPORT INFORMATION
  Report Type: Spontaneous
  Country: US (occurrence: US)
  Receive Date: 20181220
  Receipt Date: 20220420
  Transmission Date: 20220720
  Serious: Yes (Death, Hospitalization)
  Sender: FDA-Public Use
  Company Number: US-TEVA-2018-US-989127

PATIENT
  Age: 41 Year
  Sex: Male

DRUGS (21)
  1. VALPROIC ACID [Suspect]
     Active Substance: VALPROIC ACID
     Indication: Status epilepticus
     Route: 065
  2. TOPIRAMATE [Suspect]
     Active Substance: TOPIRAMATE
     Indication: Status epilepticus
     Route: 065
  3. EPINEPHRINE [Suspect]
     Active Substance: EPINEPHRINE
     Indication: Cardiac arrest
     Route: 065
  4. PROPOFOL [Suspect]
     Active Substance: PROPOFOL
     Indication: Status epilepticus
     Dosage: INFUSION
     Route: 050
  5. PHENOBARBITAL [Suspect]
     Active Substance: PHENOBARBITAL
     Indication: Status epilepticus
     Route: 065
  6. MIDAZOLAM [Interacting]
     Active Substance: MIDAZOLAM
     Indication: Status epilepticus
     Dosage: INFUSION
     Route: 050
  7. KETAMINE [Interacting]
     Active Substance: KETAMINE
     Indication: Status epilepticus
     Route: 040
  8. KETAMINE [Interacting]
     Active Substance: KETAMINE
     Dosage: MAINTENANCE INFUSION
  9. KETAMINE [Interacting]
     Active Substance: KETAMINE
  10. KETAMINE [Interacting]
     Active Substance: KETAMINE
     Dosage: 3 TO 4 MG/KG/HOUR ON HOSPITAL DAY 25
     Route: 065
  11. KETAMINE [Interacting]
     Active Substance: KETAMINE
     Dosage: UP-TITRATED BY 1.8 MG/KG/HOUR EVERY FIVE MINUTES
  12. KETAMINE [Interacting]
     Active Substance: KETAMINE
  13. CLONAZEPAM [Concomitant]
     Active Substance: CLONAZEPAM
     Indication: Status epilepticus
     Route: 065
  14. NITRAZEPAM [Concomitant]
     Active Substance: NITRAZEPAM
     Indication: Status epilepticus
     Route: 065
  15. CLOBAZAM [Concomitant]
     Active Substance: CLOBAZAM
     Indication: Status epilepticus
     Route: 065
  16. GABAPENTIN [Concomitant]
     Active Substance: GABAPENTIN
     Indication: Status epilepticus
     Route: 065
  17. PHENYTOIN [Concomitant]
     Active Substance: PHENYTOIN
     Indication: Status epilepticus
     Route: 065
  18. CARBAMAZEPINE [Concomitant]
     Active Substance: CARBAMAZEPINE
     Indication: Status epilepticus
     Route: 065
  19. LEVETIRACETAM [Concomitant]
     Active Substance: LEVETIRACETAM
     Indication: Status epilepticus
     Route: 065
  20. SULTHIAME [Concomitant]
     Active Substance: SULTHIAME
     Indication: Status epilepticus
     Route: 065
  21. LACOSAMIDE [Concomitant]
     Active Substance: LACOSAMIDE
     Indication: Status epilepticus
     Route: 065

REACTIONS (10)
  - Cardiac arrest [Fatal]
  - Pulseless electrical activity [Fatal]
  - Drug ineffective [Fatal]
  - Hypothermia [Unknown]
  - Acidosis hyperchloraemic [Unknown]
  - Lactic acidosis [Unknown]
  - Hyponatraemia [Unknown]
  - Thrombocytopenia [Unknown]
  - Renal tubular acidosis [Unknown]
  - Drug interaction [Unknown]
